FAERS Safety Report 24802558 (Version 1)
Quarter: 2025Q1

REPORT INFORMATION
  Report Type: Report from Study
  Country: US (occurrence: US)
  Receive Date: 20250103
  Receipt Date: 20250103
  Transmission Date: 20250409
  Serious: Yes (Other)
  Sender: UCB
  Company Number: US-UCBSA-2023018100

PATIENT
  Age: 75 Year
  Sex: Male

DRUGS (1)
  1. ROTIGOTINE [Suspect]
     Active Substance: ROTIGOTINE
     Indication: Restless legs syndrome
     Dosage: 8 MILLIGRAM, ONCE DAILY (QD)
     Route: 062

REACTIONS (12)
  - Cardiac operation [Unknown]
  - Coronary artery occlusion [Not Recovered/Not Resolved]
  - Attention deficit hyperactivity disorder [Unknown]
  - Rash [Unknown]
  - Localised infection [Unknown]
  - Phantom limb syndrome [Not Recovered/Not Resolved]
  - Restless legs syndrome [Not Recovered/Not Resolved]
  - Coronary arterial stent insertion [Not Recovered/Not Resolved]
  - Insomnia [Not Recovered/Not Resolved]
  - Surgery [Unknown]
  - Product dose omission in error [Unknown]
  - Product quality issue [Unknown]

NARRATIVE: CASE EVENT DATE: 20230801
